FAERS Safety Report 4289275-X (Version None)
Quarter: 2004Q1

REPORT INFORMATION
  Report Type: 
  Country: None (occurrence: None)
  Receive Date: 20040203
  Receipt Date: 19981215
  Transmission Date: 20041129
  Serious: Yes (Other)
  Sender: FDA-Public Use
  Company Number: 1998-144

PATIENT
  Age: 48 Year
  Sex: Female
  Weight: 63.5036 kg

DRUGS (2)
  1. DORYX [Suspect]
     Indication: COUGH
     Dosage: 100 MG UNK PO
     Route: 048
     Dates: start: 19981209, end: 19981216
  2. DORYX [Suspect]
     Indication: NASOPHARYNGITIS
     Dosage: 100 MG UNK PO
     Route: 048
     Dates: start: 19981209, end: 19981216

REACTIONS (4)
  - ASTHENIA [None]
  - DYSGEUSIA [None]
  - HYPERHIDROSIS [None]
  - NAUSEA [None]
